FAERS Safety Report 17698920 (Version 1)
Quarter: 2020Q2

REPORT INFORMATION
  Report Type: Spontaneous
  Country: US (occurrence: US)
  Receive Date: 20200423
  Receipt Date: 20200423
  Transmission Date: 20200714
  Serious: Yes (Hospitalization)
  Sender: FDA-Public Use
  Company Number: None

PATIENT
  Age: 84 Year
  Sex: Female

DRUGS (5)
  1. AMIODARONE [Concomitant]
     Active Substance: AMIODARONE
  2. DOFETILIDE. [Suspect]
     Active Substance: DOFETILIDE
     Indication: ATRIAL FIBRILLATION
     Route: 048
     Dates: start: 20190327
  3. POT CHLORIDE [Concomitant]
     Active Substance: POTASSIUM CHLORIDE
  4. TORSEMIDE. [Concomitant]
     Active Substance: TORSEMIDE
  5. VYNDAQEL [Concomitant]
     Active Substance: TAFAMIDIS MEGLUMINE

REACTIONS (1)
  - Cardiac fibrillation [None]

NARRATIVE: CASE EVENT DATE: 20200419
